FAERS Safety Report 4339840-6 (Version None)
Quarter: 2004Q2

REPORT INFORMATION
  Report Type: 
  Country: None (occurrence: None)
  Receive Date: 20040416
  Receipt Date: 20040405
  Transmission Date: 20050107
  Serious: Yes (Hospitalization)
  Sender: FDA-Public Use
  Company Number: FR-BRISTOL-MYERS SQUIBB COMPANY-12560009

PATIENT
  Age: 57 Year
  Sex: Female

DRUGS (7)
  1. CYCLOPHOSPHAMIDE [Suspect]
     Indication: DIFFUSE LARGE B-CELL LYMPHOMA
     Dosage: CYCLE 1 02-DEC-2003, CYCLE 2 14-DEC-2003
     Route: 042
     Dates: start: 20031230, end: 20031230
  2. METHOTREXATE [Suspect]
     Indication: DIFFUSE LARGE B-CELL LYMPHOMA
     Route: 037
     Dates: start: 20031230, end: 20031231
  3. MABTHERA [Suspect]
     Indication: DIFFUSE LARGE B-CELL LYMPHOMA
     Route: 042
     Dates: start: 20031230, end: 20031230
  4. VINCRISTINE [Concomitant]
     Dates: start: 20031202, end: 20031202
  5. PREDNISONE TAB [Concomitant]
     Dates: start: 20031202, end: 20031202
  6. CYTARABINE [Concomitant]
     Route: 037
     Dates: start: 20031230, end: 20031230
  7. ADRIAMYCIN PFS [Concomitant]
     Dates: start: 20031230, end: 20031230

REACTIONS (3)
  - DERMATITIS BULLOUS [None]
  - ERYTHEMA [None]
  - TOXIC SKIN ERUPTION [None]
